FAERS Safety Report 12098945 (Version 2)
Quarter: 2016Q1

REPORT INFORMATION
  Report Type: Spontaneous
  Country: US (occurrence: US)
  Receive Date: 20160222
  Receipt Date: 20160309
  Transmission Date: 20160526
  Serious: Yes (Other)
  Sender: FDA-Public Use
  Company Number: US-BEH-2016058858

PATIENT
  Sex: Male
  Weight: 77 kg

DRUGS (23)
  1. METAMUCIL [Concomitant]
     Active Substance: PLANTAGO SEED
  2. PROBIOTIC [Concomitant]
     Active Substance: PROBIOTICS NOS
  3. PREDNISONE. [Concomitant]
     Active Substance: PREDNISONE
  4. WELCHOL [Concomitant]
     Active Substance: COLESEVELAM HYDROCHLORIDE
  5. COENZYME [Concomitant]
     Active Substance: UBIDECARENONE
  6. THEOPHYLLINE [Concomitant]
     Active Substance: THEOPHYLLINE ANHYDROUS
  7. DIPHENHYDRAMINE. [Concomitant]
     Active Substance: DIPHENHYDRAMINE
  8. ECOTRIN [Concomitant]
     Active Substance: ASPIRIN
  9. LIDOCAINE/PRILOCAINE [Concomitant]
  10. VITAMIN D [Concomitant]
     Active Substance: CHOLECALCIFEROL
  11. METOPROLOL. [Concomitant]
     Active Substance: METOPROLOL
  12. CENTRUM SILVER [Concomitant]
     Active Substance: MINERALS\VITAMINS
  13. ALBUTEROL. [Concomitant]
     Active Substance: ALBUTEROL
  14. SPIRONOLACTONE. [Concomitant]
     Active Substance: SPIRONOLACTONE
  15. TUMS [Concomitant]
     Active Substance: CALCIUM CARBONATE
  16. OSTEO BI-FLEX [Concomitant]
     Active Substance: CHONDROITIN SULFATE A\GLUCOSAMINE
  17. MAGNESIUM [Concomitant]
     Active Substance: MAGNESIUM
  18. HIZENTRA [Suspect]
     Active Substance: HUMAN IMMUNOGLOBULIN G
     Indication: IMMUNODEFICIENCY COMMON VARIABLE
     Route: 058
     Dates: start: 20100511
  19. EPIPEN [Concomitant]
     Active Substance: EPINEPHRINE
  20. VIDAZA [Concomitant]
     Active Substance: AZACITIDINE
  21. ACETAMINOPHEN. [Concomitant]
     Active Substance: ACETAMINOPHEN
  22. AMLODIPINE [Concomitant]
     Active Substance: AMLODIPINE BESYLATE
  23. LOSARTAN. [Concomitant]
     Active Substance: LOSARTAN

REACTIONS (1)
  - Lymphoma [Not Recovered/Not Resolved]
